FAERS Safety Report 21659722 (Version 1)
Quarter: 2022Q4

REPORT INFORMATION
  Report Type: Report from Study
  Country: PR (occurrence: PR)
  Receive Date: 20221129
  Receipt Date: 20221129
  Transmission Date: 20230113
  Serious: No
  Sender: FDA-Public Use
  Company Number: PR-ABBVIE-4183131

PATIENT
  Sex: Female
  Weight: 113 kg

DRUGS (7)
  1. HUMIRA [Suspect]
     Active Substance: ADALIMUMAB
     Indication: Hidradenitis
     Dosage: 40MG/0.4ML?FORM STRENGTH: 40 MG
     Route: 058
     Dates: start: 202103
  2. TOZINAMERAN [Concomitant]
     Active Substance: TOZINAMERAN
     Indication: COVID-19
     Dosage: 2ND DOSE, FREQUENCY: ONE IN ONCE
     Route: 030
     Dates: start: 20210427, end: 20210427
  3. TOZINAMERAN [Concomitant]
     Active Substance: TOZINAMERAN
     Indication: COVID-19
     Dosage: 3RD DOSE, FREQUENCY: ONE IN ONCE
     Route: 030
     Dates: start: 20211101, end: 20211101
  4. TOZINAMERAN [Concomitant]
     Active Substance: TOZINAMERAN
     Indication: COVID-19
     Dosage: 1ST DOSE, FREQUENCY: ONE IN ONCE
     Route: 030
     Dates: start: 20210406, end: 20210406
  5. CABERGOLINE [Concomitant]
     Active Substance: CABERGOLINE
     Indication: Mass
     Route: 048
     Dates: start: 2020
  6. LEVOTHYROXINE [Concomitant]
     Active Substance: LEVOTHYROXINE
     Indication: Thyroid disorder
     Route: 048
     Dates: start: 2020
  7. TOPAMAX [Concomitant]
     Active Substance: TOPIRAMATE
     Indication: Migraine
     Route: 048
     Dates: start: 2020

REACTIONS (2)
  - Groin abscess [Recovering/Resolving]
  - Tension [Not Recovered/Not Resolved]

NARRATIVE: CASE EVENT DATE: 20221001
